FAERS Safety Report 14817248 (Version 1)
Quarter: 2018Q2

REPORT INFORMATION
  Report Type: Report from Study
  Country: US (occurrence: US)
  Receive Date: 20180426
  Receipt Date: 20180426
  Transmission Date: 20180711
  Serious: Yes (Hospitalization)
  Sender: FDA-Public Use
  Company Number: PHEH2018US015068

PATIENT
  Sex: Male

DRUGS (1)
  1. ENTRESTO [Suspect]
     Active Substance: SACUBITRIL\VALSARTAN
     Indication: PRODUCT USED FOR UNKNOWN INDICATION
     Dosage: UNK
     Route: 048
     Dates: start: 201802

REACTIONS (11)
  - Epistaxis [Unknown]
  - Weight increased [Unknown]
  - Blue toe syndrome [Unknown]
  - Back injury [Unknown]
  - Insomnia [Unknown]
  - Skin discolouration [Unknown]
  - Peripheral swelling [Unknown]
  - Dyspnoea [Unknown]
  - Fatigue [Unknown]
  - Poor peripheral circulation [Unknown]
  - Pain in extremity [Unknown]
